FAERS Safety Report 8695611 (Version 3)
Quarter: 2012Q4

REPORT INFORMATION
  Report Type: Spontaneous
  Country: US (occurrence: None)
  Receive Date: 20120713
  Receipt Date: 20121108
  Transmission Date: 20130627
  Serious: Yes (Hospitalization, Other)
  Sender: FDA-Public Use
  Company Number: ACO_30137_2012

PATIENT
  Age: 53 Year
  Sex: Female

DRUGS (3)
  1. AMPYRA [Suspect]
     Indication: MULTIPLE SCLEROSIS
     Dosage: 10 MG,  Q 12 HRS, ORAL
     Route: 048
     Dates: start: 20120225, end: 20120423
  2. AMPYRA [Suspect]
     Indication: MULTIPLE SCLEROSIS
     Dates: start: 2012
  3. TYSABRI [Concomitant]

REACTIONS (2)
  - PULMONARY THROMBOSIS [None]
  - KIDNEY INFECTION [None]
